FAERS Safety Report 4844314-X (Version None)
Quarter: 2005Q4

REPORT INFORMATION
  Report Type: 
  Country: None (occurrence: None)
  Receive Date: 20051202
  Receipt Date: 20051005
  Transmission Date: 20060501
  Serious: Yes (Hospitalization, Disabling)
  Sender: FDA-Public Use
  Company Number: US-MERCK-0510USA04589

PATIENT
  Age: 56 Year
  Sex: Male
  Weight: 180 kg

DRUGS (1)
  1. VIOXX [Suspect]
     Indication: ARTHRITIS
     Route: 048
     Dates: start: 20000101, end: 20030101

REACTIONS (5)
  - APPENDICECTOMY [None]
  - CARDIOVASCULAR DISORDER [None]
  - CHOLECYSTECTOMY [None]
  - MYOCARDIAL INFARCTION [None]
  - PNEUMONIA [None]
